FAERS Safety Report 12669806 (Version 3)
Quarter: 2016Q3

REPORT INFORMATION
  Report Type: Report from Study
  Country: CA (occurrence: CA)
  Receive Date: 20160819
  Receipt Date: 20160907
  Transmission Date: 20161109
  Serious: Yes (Other)
  Sender: FDA-Public Use
  Company Number: CA-JNJFOC-20160812829

PATIENT
  Age: 19 Year
  Sex: Male
  Weight: 75.2 kg

DRUGS (3)
  1. IMURAN [Concomitant]
     Active Substance: AZATHIOPRINE
     Route: 048
  2. REMICADE [Suspect]
     Active Substance: INFLIXIMAB
     Indication: CROHN^S DISEASE
     Route: 042
     Dates: start: 20151013
  3. REMICADE [Suspect]
     Active Substance: INFLIXIMAB
     Indication: CROHN^S DISEASE
     Route: 042
     Dates: start: 20160901

REACTIONS (9)
  - Dysuria [Recovered/Resolved]
  - Chlamydial infection [Unknown]
  - Pollakiuria [Recovered/Resolved]
  - Anorectal discomfort [Unknown]
  - Gonorrhoea [Unknown]
  - Abdominal pain [Recovered/Resolved]
  - Diarrhoea [Recovered/Resolved]
  - Genital infection fungal [Recovering/Resolving]
  - Dyspareunia [Unknown]

NARRATIVE: CASE EVENT DATE: 201608
